FAERS Safety Report 6737645-X (Version None)
Quarter: 2010Q2

REPORT INFORMATION
  Report Type: 
  Country: None (occurrence: None)
  Receive Date: 20100521
  Receipt Date: 20100521
  Transmission Date: 20101027
  Serious: No
  Sender: FDA-Public Use
  Company Number: None

PATIENT
  Age: 73 Year
  Sex: Female
  Weight: 61.2356 kg

DRUGS (2)
  1. LEVAQUIN [Suspect]
     Indication: PANCREATITIS CHRONIC
     Dosage: ONE TABLET TWICE DAILY PO
     Route: 048
     Dates: start: 20080101, end: 20091201
  2. LEVAQUIN [Suspect]
     Indication: DIVERTICULITIS
     Dosage: INTRAVENOUS 24 HRS DAILY IV
     Route: 042

REACTIONS (1)
  - TREMOR [None]
